FAERS Safety Report 13617773 (Version 1)
Quarter: 2017Q2

REPORT INFORMATION
  Report Type: Spontaneous
  Country: DE (occurrence: DE)
  Receive Date: 20170606
  Receipt Date: 20170606
  Transmission Date: 20170830
  Serious: Yes (Life-Threatening, Hospitalization, Other)
  Sender: FDA-Public Use
  Company Number: DE-HERITAGE PHARMACEUTICALS-2017HTG00138

PATIENT
  Age: 51 Year
  Sex: Female

DRUGS (1)
  1. BUPROPION HYDROCHLORIDE. [Suspect]
     Active Substance: BUPROPION HYDROCHLORIDE
     Dosage: 27 G, ONCE
     Route: 048

REACTIONS (9)
  - Overdose [Recovering/Resolving]
  - Ileus paralytic [Unknown]
  - Tonic convulsion [Recovered/Resolved]
  - Hypotension [Unknown]
  - Encephalopathy [Recovering/Resolving]
  - Toxicity to various agents [Recovering/Resolving]
  - Electrocardiogram QT prolonged [Unknown]
  - Amnesia [Not Recovered/Not Resolved]
  - Suicide attempt [Recovered/Resolved]
